FAERS Safety Report 5969490-7 (Version None)
Quarter: 2008Q4

REPORT INFORMATION
  Report Type: 
  Country: None (occurrence: None)
  Receive Date: 20081126
  Receipt Date: 20081120
  Transmission Date: 20090506
  Serious: Yes (Congenital Anomaly)
  Sender: FDA-Public Use
  Company Number: NL-PFIZER INC-2008018137

PATIENT
  Sex: Male
  Weight: 2 kg

DRUGS (1)
  1. LIPITOR [Suspect]
     Route: 048
     Dates: end: 20070417

REACTIONS (3)
  - HYDRONEPHROSIS [None]
  - RECTAL ATRESIA [None]
  - RENAL APLASIA [None]
